FAERS Safety Report 9076664 (Version 3)
Quarter: 2015Q1

REPORT INFORMATION
  Report Type: Report from Study
  Country: MX (occurrence: MX)
  Receive Date: 20130130
  Receipt Date: 20150227
  Transmission Date: 20150721
  Serious: Yes (Death, Other)
  Sender: FDA-Public Use
  Company Number: PHHY2013MX008186

PATIENT
  Age: 94 Year
  Sex: Male

DRUGS (13)
  1. PRIMIDONE. [Concomitant]
     Active Substance: PRIMIDONE
     Indication: PARKINSON^S DISEASE
     Dosage: 0.5 DF, QD
     Route: 065
     Dates: start: 1998
  2. SALBUTAMOL [Concomitant]
     Active Substance: ALBUTEROL
     Indication: PRODUCT USED FOR UNKNOWN INDICATION
     Dosage: 2 DF, QD
     Route: 065
     Dates: start: 200701
  3. BIPERIDEN [Concomitant]
     Active Substance: BIPERIDEN
     Indication: PARKINSON^S DISEASE
     Dosage: 0.5 DF, QD
     Route: 065
     Dates: start: 1998
  4. ASPIRIN PROTECT [Concomitant]
     Active Substance: ASPIRIN
     Indication: PRODUCT USED FOR UNKNOWN INDICATION
     Dosage: 1 DF, QD
     Route: 048
     Dates: start: 201210
  5. MODIODAL [Concomitant]
     Active Substance: MODAFINIL
     Indication: PRODUCT USED FOR UNKNOWN INDICATION
     Route: 065
  6. PRIMIDONE. [Concomitant]
     Active Substance: PRIMIDONE
     Dosage: 1 DF, QD
     Route: 065
     Dates: start: 200301
  7. MIACALCIC [Concomitant]
     Active Substance: CALCITONIN SALMON
     Indication: PRODUCT USED FOR UNKNOWN INDICATION
     Dosage: 2 DF, QD
     Route: 065
     Dates: start: 201210
  8. DIOVAN [Suspect]
     Active Substance: VALSARTAN
     Indication: CARDIOVASCULAR EVENT PROPHYLAXIS
  9. CIPROXIN//CIPROFLOXACIN [Concomitant]
     Indication: PRODUCT USED FOR UNKNOWN INDICATION
     Route: 065
  10. DIOVAN [Suspect]
     Active Substance: VALSARTAN
     Indication: HYPERTENSION
     Dosage: 1.5 DF, QD
     Route: 065
  11. BIPERIDEN [Concomitant]
     Active Substance: BIPERIDEN
     Dosage: 1 DF, QD
     Route: 065
     Dates: start: 200301
  12. COMBIVENT [Concomitant]
     Active Substance: ALBUTEROL SULFATE\IPRATROPIUM BROMIDE
     Indication: PRODUCT USED FOR UNKNOWN INDICATION
     Dosage: 2 DF, QD
     Route: 065
     Dates: start: 200701
  13. SEKRETOVIT EX [Concomitant]
     Indication: PRODUCT USED FOR UNKNOWN INDICATION
     Route: 065

REACTIONS (10)
  - Cardiac arrest [Fatal]
  - Hip fracture [Recovered/Resolved]
  - Influenza [Unknown]
  - Product use issue [Unknown]
  - Pneumonia [Unknown]
  - Cardiac failure [Unknown]
  - Fall [Recovered/Resolved]
  - Urinary tract infection [Recovered/Resolved]
  - Wrong technique in drug usage process [Unknown]
  - Influenza [Recovered/Resolved]

NARRATIVE: CASE EVENT DATE: 201301
